FAERS Safety Report 21842222 (Version 1)
Quarter: 2023Q1

REPORT INFORMATION
  Report Type: Spontaneous
  Country: ES (occurrence: ES)
  Receive Date: 20230110
  Receipt Date: 20230110
  Transmission Date: 20230417
  Serious: Yes (Hospitalization)
  Sender: FDA-Public Use
  Company Number: ES-STRIDES ARCOLAB LIMITED-2023SP000445

PATIENT
  Age: 13 Year
  Sex: Female

DRUGS (1)
  1. AMOXICILLIN [Suspect]
     Active Substance: AMOXICILLIN
     Indication: Product used for unknown indication
     Dosage: 130 MILLIGRAM/KILOGRAM, UNKNOWN (TABLET)
     Route: 048

REACTIONS (2)
  - Suicide attempt [Unknown]
  - Overdose [Unknown]
